FAERS Safety Report 6386819-9 (Version None)
Quarter: 2009Q4

REPORT INFORMATION
  Report Type: 
  Country: None (occurrence: None)
  Receive Date: 20091002
  Receipt Date: 20090929
  Transmission Date: 20100525
  Serious: Yes (Other)
  Sender: FDA-Public Use
  Company Number: B0596088A

PATIENT
  Sex: Male

DRUGS (7)
  1. AVANDIA [Suspect]
     Route: 065
  2. IMDUR [Concomitant]
     Dosage: 60MG PER DAY
  3. ASPIRIN [Concomitant]
     Dosage: 50MG PER DAY
  4. ATENOLOL [Concomitant]
     Dosage: 50MG PER DAY
  5. TRITACE [Concomitant]
     Dosage: 10MG PER DAY
  6. VYTORIN [Concomitant]
  7. HYDRALAZINE [Concomitant]
     Dosage: 50MG TWICE PER DAY

REACTIONS (9)
  - CARDIAC DISORDER [None]
  - DEAFNESS [None]
  - HYPERSENSITIVITY [None]
  - IMPAIRED DRIVING ABILITY [None]
  - PAIN [None]
  - RASH [None]
  - RENAL IMPAIRMENT [None]
  - RENAL INJURY [None]
  - VISUAL ACUITY REDUCED [None]
